FAERS Safety Report 15253990 (Version 1)
Quarter: 2018Q3

REPORT INFORMATION
  Report Type: Other
  Country: DE (occurrence: DE)
  Receive Date: 20180808
  Receipt Date: 20180808
  Transmission Date: 20181010
  Serious: Yes (Other)
  Sender: FDA-Public Use
  Company Number: DE-MACLEODS PHARMACEUTICALS US LTD-MAC2018016271

PATIENT

DRUGS (9)
  1. TORASEMID [Concomitant]
     Active Substance: TORSEMIDE
     Indication: HYPERTENSION
     Dosage: UNK, 0. ? 5.2. GESTATIONAL WEEK, 1 TRIMESTER
     Route: 048
  2. PANTOPRAZOLE [Suspect]
     Active Substance: PANTOPRAZOLE
     Indication: GASTRITIS PROPHYLAXIS
     Dosage: 40 MILLIGRAM, QD, 1 TRIMESTER
     Route: 048
  3. NEPRESOL (DIHYDRALAZINE SULFATE) [Suspect]
     Active Substance: DIHYDRALAZINE SULFATE
     Indication: HYPERTENSION
     Dosage: 50 MILLIGRAM, QD, 0. ? 20.6. GESTATIONAL WEEK, 1 TRIMESTER
     Route: 048
     Dates: start: 20171209, end: 20180504
  4. MIFEGYNE [Concomitant]
     Active Substance: MIFEPRISTONE
     Indication: ABORTION INDUCED
     Dosage: UNK, 20.4. ? 20.5. GESTATIONAL WEEK, 2 TRIMESTER
     Route: 048
     Dates: start: 20180502, end: 20180503
  5. METOPROLOL. [Suspect]
     Active Substance: METOPROLOL
     Indication: HYPERTENSION
     Dosage: 190 [MG/D ]/ INITIAL 2 X 95MG/D, THEN DOSAGE DECREASE TO 2 X 47.5MG/D, 1 TRIMESTER
     Route: 048
     Dates: start: 20171209, end: 20180504
  6. CERGEM [Concomitant]
     Active Substance: GEMEPROST
     Indication: ABORTION INDUCED
     Dosage: UNK, 20.4. ? 20.5. GESTATIONAL WEEK, 2 TRIMESTER
     Route: 067
     Dates: start: 20180502, end: 20180503
  7. LAMOTRIGINE. [Suspect]
     Active Substance: LAMOTRIGINE
     Indication: EPILEPSY
     Dosage: 100 [MG/D ]/ 50 TO 100 MG/D, 0. ? 20.6. GESTATIONAL WEEK, 1 TRIMESTER
     Route: 048
     Dates: start: 20171209, end: 20180504
  8. DORZOLAMIDE [Concomitant]
     Active Substance: DORZOLAMIDE
     Indication: GLAUCOMA
     Dosage: UNK, 18.1. ? 20.6. GESTATIONAL WEEK, 2 TRIMESTER
     Route: 047
  9. CANDESARTAN. [Suspect]
     Active Substance: CANDESARTAN
     Indication: HYPERTENSION
     Dosage: 32 MILLIGRAM, QD,  1 TRIMESTER
     Route: 048

REACTIONS (2)
  - Exposure during pregnancy [Recovered/Resolved]
  - Oligohydramnios [Recovered/Resolved]
